FAERS Safety Report 13993513 (Version 2)
Quarter: 2017Q4

REPORT INFORMATION
  Report Type: Spontaneous
  Country: IT (occurrence: IT)
  Receive Date: 20170920
  Receipt Date: 20171010
  Transmission Date: 20180321
  Serious: Yes (Other)
  Sender: FDA-Public Use
  Company Number: IT-PFIZER INC-2017400213

PATIENT
  Age: 4 Year
  Sex: Male

DRUGS (5)
  1. ANTITHYMOCYTE IMMUNOGLOBULIN [Suspect]
     Active Substance: THYMOCYTE IMMUNE GLOBULIN NOS
     Dosage: 2.5 MG/KG, DAILY ON DAY 6 TO DAY 3
  2. METHYLPREDNISOLONE SODIUM SUCCINATE. [Suspect]
     Active Substance: METHYLPREDNISOLONE SODIUM SUCCINATE
     Dosage: 5 MG/KG, UNK
     Route: 042
  3. BUSULFAN. [Suspect]
     Active Substance: BUSULFAN
     Dosage: 5 MG/KG, DAILY ON DAY 10
  4. CYCLOPHOSPHAMIDE. [Suspect]
     Active Substance: CYCLOPHOSPHAMIDE
     Dosage: 50 MG/KG, DAILY ON DAY 6
  5. CYCLOSPORINE. [Suspect]
     Active Substance: CYCLOSPORINE
     Indication: GRAFT VERSUS HOST DISEASE
     Dosage: 5 MG/KG, DAILY FROM DAY 1

REACTIONS (9)
  - Anaemia [Recovered/Resolved]
  - Keratitis [Recovered/Resolved]
  - Coombs positive haemolytic anaemia [Recovered/Resolved]
  - Thrombocytopenic purpura [Recovered/Resolved]
  - Red blood cell schistocytes present [Recovered/Resolved]
  - Lymphoedema [Recovered/Resolved]
  - Acute graft versus host disease in intestine [Recovered/Resolved]
  - Acute graft versus host disease in skin [Recovered/Resolved]
  - Thrombotic microangiopathy [Recovered/Resolved]
